FAERS Safety Report 12643523 (Version 3)
Quarter: 2016Q4

REPORT INFORMATION
  Report Type: Spontaneous
  Country: US (occurrence: US)
  Receive Date: 20160811
  Receipt Date: 20161124
  Transmission Date: 20170207
  Serious: Yes (Other)
  Sender: FDA-Public Use
  Company Number: US-TEVA-683771ACC

PATIENT
  Age: 45 Year
  Sex: Female
  Weight: 51.76 kg

DRUGS (1)
  1. PARAGARD T 380A [Suspect]
     Active Substance: COPPER
     Indication: CONTRACEPTION
     Dates: start: 20160721, end: 20160802

REACTIONS (6)
  - Abdominal pain [Unknown]
  - Pelvic pain [Unknown]
  - Dysuria [Unknown]
  - Pyrexia [Unknown]
  - Exposure during breast feeding [Unknown]
  - Uterine perforation [Recovered/Resolved]

NARRATIVE: CASE EVENT DATE: 20160721
